FAERS Safety Report 4547484-6 (Version None)
Quarter: 2005Q1

REPORT INFORMATION
  Report Type: 
  Country: None (occurrence: None)
  Receive Date: 20041227
  Receipt Date: 20040924
  Transmission Date: 20050727
  Serious: No
  Sender: FDA-Public Use
  Company Number: 04P-163-0274656-00

PATIENT
  Age: 55 Year
  Sex: Male
  Weight: 104 kg

DRUGS (9)
  1. HUMIRA [Suspect]
     Indication: RHEUMATOID ARTHRITIS
     Dosage: 40 MG, 1 IN 2 WK, SUBCUTANEOUS
     Route: 058
     Dates: start: 20040817
  2. PREDNISONE [Concomitant]
  3. GALENIC / PARACETAMOL/CODEINE [Concomitant]
  4. OMEPRAZOLE [Concomitant]
  5. LEFLUNOMIDE [Concomitant]
  6. CHOLINE MAGNESIUM TRISALICYLATE [Concomitant]
  7. MULTI-VITAMINS [Concomitant]
  8. CALCIUM D3 ^STADA^ [Concomitant]
  9. ALENDRONATE SODIUM [Concomitant]

REACTIONS (1)
  - INJECTION SITE PAIN [None]
